FAERS Safety Report 19763238 (Version 1)
Quarter: 2021Q3

REPORT INFORMATION
  Report Type: Spontaneous
  Country: DE (occurrence: DE)
  Receive Date: 20210830
  Receipt Date: 20210830
  Transmission Date: 20211014
  Serious: Yes (Other)
  Sender: FDA-Public Use
  Company Number: DE-MYLANLABS-2021M1055241

PATIENT

DRUGS (9)
  1. METHOTREXATE. [Suspect]
     Active Substance: METHOTREXATE
     Indication: PRODUCT USED FOR UNKNOWN INDICATION
     Dosage: GIVEN AFTER RITUXIMAB
  2. RITUXIMAB. [Suspect]
     Active Substance: RITUXIMAB
     Indication: SYSTEMIC SCLERODERMA
  3. AZATHIOPRINE. [Suspect]
     Active Substance: AZATHIOPRINE
     Dosage: GIVEN AFTER CYCLOPHOSPHAMIDE
  4. PARACETAMOL [Concomitant]
     Active Substance: ACETAMINOPHEN
     Indication: PREMEDICATION
     Dosage: UNK
  5. RITUXIMAB. [Suspect]
     Active Substance: RITUXIMAB
     Indication: INTERSTITIAL LUNG DISEASE
     Dosage: 2.0 G IN TOTAL; MOST PATIENTS RECEIVED ONE CYCLE (MEDIAN 1 [IQR 1?3]) OF 2X1 G WITH A TWO?WEEK INTER
  6. CYCLOPHOSPHAMIDE. [Suspect]
     Active Substance: CYCLOPHOSPHAMIDE
     Indication: INTERSTITIAL LUNG DISEASE
     Dosage: TOTAL DOSE 13.5 G (12 INFUSIONS); GIVEN USUALLY AT 750 MG/M2 BSA EVERY FOUR WEEKS
     Route: 042
  7. METHOTREXATE. [Suspect]
     Active Substance: METHOTREXATE
     Dosage: GIVEN AFTER CYCLOPHOSPHAMIDE
  8. CYCLOPHOSPHAMIDE. [Suspect]
     Active Substance: CYCLOPHOSPHAMIDE
     Indication: SYSTEMIC SCLERODERMA
  9. AZATHIOPRINE. [Suspect]
     Active Substance: AZATHIOPRINE
     Indication: PRODUCT USED FOR UNKNOWN INDICATION
     Dosage: GIVEN AFTER RITUXIMAB

REACTIONS (5)
  - Condition aggravated [Unknown]
  - Off label use [Unknown]
  - Systemic scleroderma [Unknown]
  - Interstitial lung disease [Unknown]
  - Febrile neutropenia [Unknown]
